FAERS Safety Report 19804361 (Version 2)
Quarter: 2022Q3

REPORT INFORMATION
  Report Type: Spontaneous
  Country: US (occurrence: None)
  Receive Date: 20210908
  Receipt Date: 20220907
  Transmission Date: 20221027
  Serious: No
  Sender: FDA-Public Use
  Company Number: US-FARMAPROD-202105-0795

PATIENT
  Age: 65 Year
  Sex: Female

DRUGS (11)
  1. OXERVATE [Suspect]
     Active Substance: CENEGERMIN-BKBJ
     Indication: Keratitis
     Route: 047
     Dates: start: 20210519, end: 20210713
  2. HYDROCHLOROTHIAZIDE [Concomitant]
     Active Substance: HYDROCHLOROTHIAZIDE
     Indication: Fluid retention
  3. HYDROCHLOROTHIAZIDE [Concomitant]
     Active Substance: HYDROCHLOROTHIAZIDE
     Indication: Hypertension
  4. DUEXIS [Concomitant]
     Active Substance: FAMOTIDINE\IBUPROFEN
     Indication: Gastric disorder
     Dosage: 800 MG/ 26.6 MG
  5. VITAMINS [Concomitant]
     Active Substance: VITAMINS
  6. COMBIGAN [Concomitant]
     Active Substance: BRIMONIDINE TARTRATE\TIMOLOL MALEATE
     Dosage: 0.2%-0.5%
  7. DUREZOL [Concomitant]
     Active Substance: DIFLUPREDNATE
  8. VALTREX [Concomitant]
     Active Substance: VALACYCLOVIR HYDROCHLORIDE
  9. REFRESH PLUS [Concomitant]
     Active Substance: CARBOXYMETHYLCELLULOSE SODIUM
     Dosage: DROPERETTE
  10. BIOTIN [Concomitant]
     Active Substance: BIOTIN
  11. INVELTYS [Concomitant]
     Active Substance: LOTEPREDNOL ETABONATE

REACTIONS (9)
  - Photophobia [Not Recovered/Not Resolved]
  - Eye pain [Unknown]
  - Somnolence [Not Recovered/Not Resolved]
  - Accidental overdose [Unknown]
  - Vision blurred [Not Recovered/Not Resolved]
  - Tendonitis [Unknown]
  - Periorbital pain [Unknown]
  - Therapy partial responder [Unknown]
  - Toothache [Unknown]

NARRATIVE: CASE EVENT DATE: 20210501
